FAERS Safety Report 6346769-0 (Version None)
Quarter: 2009Q3

REPORT INFORMATION
  Report Type: 
  Country: None (occurrence: None)
  Receive Date: 20090909
  Receipt Date: 20090902
  Transmission Date: 20100115
  Serious: Yes (Hospitalization)
  Sender: FDA-Public Use
  Company Number: CA-ABBOTT-09P-028-0592678-00

PATIENT
  Sex: Male
  Weight: 95.34 kg

DRUGS (1)
  1. HUMIRA [Suspect]
     Indication: RHEUMATOID ARTHRITIS
     Route: 058
     Dates: start: 20071029, end: 20090622

REACTIONS (2)
  - VENOUS OPERATION [None]
  - WOUND INFECTION [None]
